FAERS Safety Report 13955731 (Version 3)
Quarter: 2018Q2

REPORT INFORMATION
  Report Type: Spontaneous
  Country: FR (occurrence: FR)
  Receive Date: 20170911
  Receipt Date: 20180403
  Transmission Date: 20180711
  Serious: Yes (Other)
  Sender: FDA-Public Use
  Company Number: FR-BAYER-2017-167252

PATIENT
  Age: 62 Year
  Sex: Male

DRUGS (8)
  1. CABAZITAXEL [Concomitant]
     Active Substance: CABAZITAXEL
  2. DECTANCYL [Suspect]
     Active Substance: DEXAMETHASONE
     Indication: PROSTATE CANCER METASTATIC
     Dosage: 0.5 MG, QD
     Route: 048
     Dates: start: 201502
  3. DECAPEPTYL (ACETATE) [Suspect]
     Active Substance: TRIPTORELIN ACETATE
     Indication: PROSTATE CANCER METASTATIC
     Dosage: 11.25 MG, Q1MON
     Route: 030
     Dates: start: 201209
  4. XTANDI [Suspect]
     Active Substance: ENZALUTAMIDE
     Indication: PROSTATE CANCER METASTATIC
     Dosage: 40 MG, QD
     Route: 048
  5. XOFIGO [Suspect]
     Active Substance: RADIUM RA-223 DICHLORIDE
     Indication: PROSTATE CANCER METASTATIC
     Dosage: UNK
     Route: 042
     Dates: start: 201502, end: 201506
  6. XOFIGO [Suspect]
     Active Substance: RADIUM RA-223 DICHLORIDE
     Indication: PROSTATE CANCER METASTATIC
     Dosage: 1 DF, 6 CYCLES
     Route: 042
     Dates: start: 201612, end: 20170502
  7. XGEVA [Suspect]
     Active Substance: DENOSUMAB
     Indication: PROSTATE CANCER METASTATIC
     Dosage: 120 MG, Q1MON
     Route: 058
     Dates: start: 201309
  8. ZYTIGA [Concomitant]
     Active Substance: ABIRATERONE ACETATE

REACTIONS (7)
  - Lymphadenopathy [Unknown]
  - Vision blurred [Recovering/Resolving]
  - Glaucoma [Unknown]
  - Central nervous system lesion [Unknown]
  - Hyphaema [Recovered/Resolved]
  - Iridocyclitis [Recovered/Resolved]
  - Prostatic specific antigen increased [None]

NARRATIVE: CASE EVENT DATE: 201601
